FAERS Safety Report 12141213 (Version 1)
Quarter: 2016Q1

REPORT INFORMATION
  Report Type: Report from Study
  Country: US (occurrence: US)
  Receive Date: 20160303
  Receipt Date: 20160303
  Transmission Date: 20160526
  Serious: No
  Sender: FDA-Public Use
  Company Number: US-AMGEN-USASL2016023301

PATIENT
  Age: 41 Year
  Sex: Female

DRUGS (1)
  1. ENBREL [Suspect]
     Active Substance: ETANERCEPT
     Indication: RHEUMATOID ARTHRITIS
     Dosage: UNK UNK, UNK
     Route: 065
     Dates: start: 20160215

REACTIONS (10)
  - Drug hypersensitivity [Not Recovered/Not Resolved]
  - Throat irritation [Unknown]
  - Inflammation [Unknown]
  - Arthralgia [Unknown]
  - Sinusitis [Unknown]
  - Joint crepitation [Unknown]
  - Bone pain [Unknown]
  - Headache [Recovering/Resolving]
  - Blood cholesterol abnormal [Unknown]
  - Dyspnoea [Unknown]

NARRATIVE: CASE EVENT DATE: 201602
